FAERS Safety Report 21099467 (Version 1)
Quarter: 2022Q3

REPORT INFORMATION
  Report Type: Spontaneous
  Country: CA (occurrence: CA)
  Receive Date: 20220719
  Receipt Date: 20220719
  Transmission Date: 20221026
  Serious: Yes (Other)
  Sender: FDA-Public Use
  Company Number: CA-PFIZER INC-202200962295

PATIENT
  Age: 68 Year

DRUGS (2)
  1. CRIZOTINIB [Suspect]
     Active Substance: CRIZOTINIB
     Indication: Lung carcinoma cell type unspecified stage IV
     Dosage: UNK
     Route: 065
  2. ALECTINIB [Suspect]
     Active Substance: ALECTINIB
     Indication: Lung carcinoma cell type unspecified stage IV
     Dosage: UNK
     Route: 065

REACTIONS (2)
  - Liver disorder [Unknown]
  - Nodule [Unknown]
